FAERS Safety Report 6229399-0 (Version None)
Quarter: 2009Q2

REPORT INFORMATION
  Report Type: 
  Country: None (occurrence: None)
  Receive Date: 20090608
  Receipt Date: 20080424
  Transmission Date: 20091009
  Serious: Yes (Hospitalization)
  Sender: FDA-Public Use
  Company Number: APP200800343

PATIENT
  Age: 45 Year
  Sex: Female
  Weight: 112.4921 kg

DRUGS (24)
  1. PROTAMINE SULFATE [Suspect]
     Indication: ARTERIOVENOUS FISTULA OPERATION
     Dosage: 10 MG, ONCE, INTRAVENOUS
     Route: 042
     Dates: start: 20080418, end: 20080418
  2. PROTAMINE SULFATE [Suspect]
     Indication: HEPARIN NEUTRALISATION THERAPY
     Dosage: 10 MG, ONCE, INTRAVENOUS
     Route: 042
     Dates: start: 20080418, end: 20080418
  3. HEPARIN [Concomitant]
  4. KEFZOL [Concomitant]
  5. PEPCID [Concomitant]
  6. REGLAN [Concomitant]
  7. BICITRA (SHOHL'S) [Concomitant]
  8. VERSED [Concomitant]
  9. MORPHINE [Concomitant]
  10. LIDOCAINE [Concomitant]
  11. BENICAR [Concomitant]
  12. NORVASC [Concomitant]
  13. LISINOPRIL [Concomitant]
  14. VYTORIN [Concomitant]
  15. ZEMPLAR [Concomitant]
  16. PROZAC [Concomitant]
  17. KLONOPIN [Concomitant]
  18. AMBIEN [Concomitant]
  19. NOVOLOG [Concomitant]
  20. LYRICA [Concomitant]
  21. FERROUS SULFATE TAB [Concomitant]
  22. LASIX [Concomitant]
  23. SKELAXIN [Concomitant]
  24. VICODIN ES [Concomitant]

REACTIONS (2)
  - BLOOD PRESSURE DECREASED [None]
  - HEART RATE DECREASED [None]
